FAERS Safety Report 6239737-0 (Version None)
Quarter: 2009Q2

REPORT INFORMATION
  Report Type: 
  Country: None (occurrence: None)
  Receive Date: 20090619
  Receipt Date: 20090608
  Transmission Date: 20091009
  Serious: Yes (Life-Threatening)
  Sender: FDA-Public Use
  Company Number: ADR3972009

PATIENT
  Age: 75 Year
  Sex: Female

DRUGS (8)
  1. SIMVASTATIN [Suspect]
     Indication: HYPERLIPIDAEMIA
     Dosage: 40 MG
     Route: 048
     Dates: start: 20080501
  2. FALITHROM (PHENPROCOUMON) [Concomitant]
  3. CLEXANE (HEPARIN-FRACTON, SODIUM SALT) [Concomitant]
  4. ISCOVER (CLOPIDOGREL SULPHATE) [Concomitant]
  5. OMEPRAZOLE [Concomitant]
  6. METOHEXAL (METOPROLOL TARTRATE) [Concomitant]
  7. RAMIPRIL [Concomitant]
  8. THIAMAZOLE [Concomitant]

REACTIONS (2)
  - DRUG INTERACTION [None]
  - GASTROINTESTINAL HAEMORRHAGE [None]
